FAERS Safety Report 23414876 (Version 1)
Quarter: 2024Q1

REPORT INFORMATION
  Report Type: Spontaneous
  Country: US (occurrence: US)
  Receive Date: 20240118
  Receipt Date: 20240118
  Transmission Date: 20240409
  Serious: Yes (Other)
  Sender: FDA-Public Use
  Company Number: US-BAUSCHBL-2024BNL000516

PATIENT
  Sex: Female

DRUGS (2)
  1. XIIDRA [Suspect]
     Active Substance: LIFITEGRAST
     Indication: Sjogren^s syndrome
     Dosage: FOR 1 AND 1/2 YEARS
     Route: 047
     Dates: start: 2022
  2. XIIDRA [Suspect]
     Active Substance: LIFITEGRAST
     Indication: Dry eye

REACTIONS (2)
  - Limb operation [Unknown]
  - Product use complaint [Unknown]
